FAERS Safety Report 11865846 (Version 1)
Quarter: 2015Q4

REPORT INFORMATION
  Report Type: Spontaneous
  Country: JP (occurrence: JP)
  Receive Date: 20151223
  Receipt Date: 20151223
  Transmission Date: 20160305
  Serious: Yes (Other)
  Sender: FDA-Public Use
  Company Number: JP-SA-2015SA216953

PATIENT
  Age: 18 Year
  Sex: Female

DRUGS (4)
  1. NAUZELIN [Suspect]
     Active Substance: DOMPERIDONE
     Route: 048
  2. GASMOTIN [Suspect]
     Active Substance: MOSAPRIDE CITRATE
     Route: 048
  3. LEXAPRO [Suspect]
     Active Substance: ESCITALOPRAM OXALATE
     Route: 048
  4. MYSLEE [Suspect]
     Active Substance: ZOLPIDEM TARTRATE
     Route: 048

REACTIONS (1)
  - Deafness [Not Recovered/Not Resolved]

NARRATIVE: CASE EVENT DATE: 20151214
